FAERS Safety Report 20297403 (Version 6)
Quarter: 2023Q1

REPORT INFORMATION
  Report Type: Report from Study
  Country: JP (occurrence: JP)
  Receive Date: 20220105
  Receipt Date: 20230116
  Transmission Date: 20230417
  Serious: Yes (Hospitalization)
  Sender: FDA-Public Use
  Company Number: JP-CHUGAI-2021021827

PATIENT
  Age: 58 Year
  Sex: Female
  Weight: 52.6 kg

DRUGS (18)
  1. ATEZOLIZUMAB [Suspect]
     Active Substance: ATEZOLIZUMAB
     Indication: Breast cancer
     Dosage: 840 MG, DAY1 AND DAY15 FOR 1CYCLE 28 DAYS
     Route: 041
     Dates: start: 20210510, end: 20220308
  2. BEVACIZUMAB [Suspect]
     Active Substance: BEVACIZUMAB
     Indication: Breast cancer
     Dosage: 520 MILLIGRAM, DAY1AND DAY15 FOR 1CYCLE 28 DAYS
     Route: 041
     Dates: start: 20210510, end: 20220308
  3. PACLITAXEL [Suspect]
     Active Substance: PACLITAXEL
     Indication: Breast cancer
     Dosage: 95 MILLIGRAM, DAY1, DAY8 AND DAY15 FOR 1CYCLE 28 DAYS
     Route: 042
     Dates: start: 20210510, end: 20220308
  4. URSODIOL [Concomitant]
     Active Substance: URSODIOL
     Indication: Dyspepsia
     Route: 048
     Dates: start: 20210510
  5. LOXOPROFEN SODIUM DIHYDRATE [Concomitant]
     Active Substance: LOXOPROFEN SODIUM DIHYDRATE
     Indication: Inflammatory pain
     Dosage: UNK
     Route: 048
  6. REBAMIPIDE [Concomitant]
     Active Substance: REBAMIPIDE
     Indication: Gastritis prophylaxis
     Dosage: UNK
  7. CALONAL [Concomitant]
     Active Substance: ACETAMINOPHEN
     Indication: Pyrexia
     Route: 048
  8. ZOLEDRONIC ACID [Concomitant]
     Active Substance: ZOLEDRONIC ACID
     Indication: Bone lesion
     Dosage: UNK
     Route: 065
  9. RINDERON VG [Concomitant]
     Active Substance: BETAMETHASONE VALERATE\GENTAMICIN SULFATE
     Indication: Dermatitis
     Dosage: UNK UNK, QD
     Route: 061
     Dates: start: 20210913
  10. LANSOPRAZOLE [Concomitant]
     Active Substance: LANSOPRAZOLE
     Indication: Peptic ulcer
     Dosage: UNK, HS
     Route: 048
     Dates: start: 20210927
  11. SODIUM GUALENATE [Concomitant]
     Active Substance: SODIUM GUALENATE
     Indication: Dermatitis
     Dosage: UNK, BID
     Route: 061
     Dates: start: 20210607
  12. SODIUM GUALENATE [Concomitant]
     Active Substance: SODIUM GUALENATE
     Indication: Prophylaxis
     Dosage: UNK, QID
     Dates: start: 20210517
  13. SODIUM GUALENATE [Concomitant]
     Active Substance: SODIUM GUALENATE
     Indication: Dermatitis
  14. PARAFFIN [Concomitant]
     Active Substance: PARAFFIN
     Indication: Dry skin prophylaxis
     Dosage: UNK, TID
     Route: 061
     Dates: start: 20210621
  15. METOCLOPRAMIDE [Concomitant]
     Active Substance: METOCLOPRAMIDE
     Indication: Dyspepsia
     Dosage: UNK
     Route: 048
     Dates: start: 20210810
  16. MIROGABALIN BESYLATE [Concomitant]
     Active Substance: MIROGABALIN BESYLATE
     Indication: Neuralgia
     Dosage: UNK
     Route: 048
     Dates: start: 20210817
  17. ZINC [Concomitant]
     Active Substance: ZINC
     Indication: Taste disorder
     Dosage: UNK, QD
     Route: 048
     Dates: start: 20210821
  18. GLYCOSAMINOGLYCANS [Concomitant]
     Active Substance: GLYCOSAMINOGLYCANS
     Indication: Dry skin
     Dosage: UNK
     Route: 061
     Dates: start: 20210906

REACTIONS (3)
  - Cholangitis acute [Recovered/Resolved]
  - Cholangitis [Recovering/Resolving]
  - Cardiac failure [Recovering/Resolving]

NARRATIVE: CASE EVENT DATE: 20211005
